FAERS Safety Report 7224233-4 (Version None)
Quarter: 2011Q1

REPORT INFORMATION
  Report Type: 
  Country: None (occurrence: None)
  Receive Date: 20110113
  Receipt Date: 20110107
  Transmission Date: 20110831
  Serious: Yes (Other)
  Sender: FDA-Public Use
  Company Number: US-BAXTER-2011BH000569

PATIENT
  Sex: Male

DRUGS (2)
  1. GAMMAGARD S/D [Suspect]
     Indication: OFF LABEL USE
     Route: 065
  2. GAMMAGARD S/D [Suspect]
     Indication: SJOGREN'S SYNDROME
     Route: 065

REACTIONS (1)
  - MENINGITIS ASEPTIC [None]
